FAERS Safety Report 6868509-9 (Version None)
Quarter: 2010Q3

REPORT INFORMATION
  Report Type: 
  Country: None (occurrence: None)
  Receive Date: 20100722
  Receipt Date: 20080531
  Transmission Date: 20110219
  Serious: Yes (Other)
  Sender: FDA-Public Use
  Company Number: US-PFIZER INC-2008047388

PATIENT
  Sex: Female
  Weight: 90.3 kg

DRUGS (7)
  1. CHANTIX [Suspect]
     Indication: EX-TOBACCO USER
     Dates: start: 20080526
  2. FENTANYL [Concomitant]
     Dates: start: 20080501
  3. LEXAPRO [Concomitant]
  4. LYRICA [Concomitant]
  5. SPIRIVA [Concomitant]
  6. VITAMINS [Concomitant]
  7. BLACK COHOSH [Concomitant]

REACTIONS (2)
  - DRUG INEFFECTIVE [None]
  - MIGRAINE [None]
